FAERS Safety Report 10554677 (Version 4)
Quarter: 2014Q4

REPORT INFORMATION
  Report Type: Spontaneous
  Country: IT (occurrence: IT)
  Receive Date: 20141030
  Receipt Date: 20141202
  Transmission Date: 20150529
  Serious: Yes (Life-Threatening, Hospitalization, Other)
  Sender: FDA-Public Use
  Company Number: IT-PFIZER INC-2014299033

PATIENT
  Age: 79 Year
  Sex: Female

DRUGS (4)
  1. MEDROL [Suspect]
     Active Substance: METHYLPREDNISOLONE
     Indication: RHEUMATOID ARTHRITIS
     Dosage: 2 MG, 1X/DAY
     Dates: start: 20130901
  2. METHOTREXATE SODIUM. [Interacting]
     Active Substance: METHOTREXATE SODIUM
     Indication: RHEUMATOID ARTHRITIS
     Dosage: 5 MG, WEEKLY
     Route: 048
     Dates: start: 20130901
  3. ALENDRONIC ACID [Concomitant]
     Active Substance: ALENDRONIC ACID
     Dosage: 70 MG
  4. DIBASE [Concomitant]
     Active Substance: CHOLECALCIFEROL
     Dosage: 25 GTT

REACTIONS (9)
  - Coagulopathy [Recovering/Resolving]
  - Sepsis [Recovered/Resolved]
  - Dehydration [Recovering/Resolving]
  - Confusional state [Recovered/Resolved]
  - Liver abscess [Recovered/Resolved]
  - Septic shock [Recovered/Resolved]
  - Colitis [Recovering/Resolving]
  - Thrombocytopenia [Recovered/Resolved]
  - Drug interaction [Recovered/Resolved]

NARRATIVE: CASE EVENT DATE: 20140826
